FAERS Safety Report 7079269-3 (Version None)
Quarter: 2010Q4

REPORT INFORMATION
  Report Type: 
  Country: None (occurrence: None)
  Receive Date: 20101102
  Receipt Date: 20101022
  Transmission Date: 20110411
  Serious: Yes (Other)
  Sender: FDA-Public Use
  Company Number: JP-ROCHE-737853

PATIENT
  Age: 58 Year
  Sex: Female

DRUGS (1)
  1. XELODA [Suspect]
     Indication: COLON CANCER
     Dosage: DRUG NAME: XELODA 300
     Route: 048
     Dates: start: 20091001, end: 20100301

REACTIONS (2)
  - INTERSTITIAL LUNG DISEASE [None]
  - RASH [None]
